FAERS Safety Report 24127889 (Version 1)
Quarter: 2024Q3

REPORT INFORMATION
  Report Type: Spontaneous
  Country: US (occurrence: US)
  Receive Date: 20240723
  Receipt Date: 20240723
  Transmission Date: 20241017
  Serious: No
  Sender: TEVA
  Company Number: US-TEVA-VS-3221389

PATIENT
  Age: 31 Year
  Sex: Female

DRUGS (1)
  1. KELNOR 1/35 [Suspect]
     Active Substance: ETHINYL ESTRADIOL\ETHYNODIOL DIACETATE
     Indication: Endometriosis
     Dosage: 1-35 MG-MCG
     Route: 065
     Dates: start: 2014

REACTIONS (2)
  - Nightmare [Unknown]
  - Product use in unapproved indication [Unknown]
